FAERS Safety Report 7405349-6 (Version None)
Quarter: 2011Q2

REPORT INFORMATION
  Report Type: 
  Country: None (occurrence: None)
  Receive Date: 20110403
  Receipt Date: 20110124
  Transmission Date: 20111010
  Serious: Yes (Hospitalization)
  Sender: FDA-Public Use
  Company Number: DL2011-0057

PATIENT
  Age: 19 Year
  Sex: Female

DRUGS (2)
  1. MIFEPREX [Suspect]
     Indication: ABORTION INDUCED
     Dosage: 200 MG, ORAL
     Route: 048
     Dates: start: 20101124
  2. DOXYCYCLINE [Concomitant]

REACTIONS (3)
  - PYREXIA [None]
  - INFECTION [None]
  - PAIN [None]
